FAERS Safety Report 7638781-6 (Version None)
Quarter: 2011Q3

REPORT INFORMATION
  Report Type: 
  Country: None (occurrence: None)
  Receive Date: 20110722
  Receipt Date: 20110714
  Transmission Date: 20111222
  Serious: Yes (Other)
  Sender: FDA-Public Use
  Company Number: CPR-2011-0002

PATIENT
  Age: 59 Year
  Sex: Female

DRUGS (6)
  1. LIOTHYRONINE SODIUM TAB [Suspect]
     Indication: HYPOTHYROIDISM
     Dosage: 5 MCG TABLET, ORAL
     Route: 048
     Dates: start: 20110510, end: 20110511
  2. LEVOTHYROXINE SODIUM [Concomitant]
  3. PROPRANOLOL [Concomitant]
  4. CLONAZEPAM [Concomitant]
  5. VITAMIN D [Concomitant]
  6. CALCIUM ACETATE [Concomitant]

REACTIONS (6)
  - MIDDLE INSOMNIA [None]
  - CRYING [None]
  - PRODUCT SUBSTITUTION ISSUE [None]
  - ANXIETY [None]
  - AMNESIA [None]
  - DELUSION [None]
